FAERS Safety Report 14607230 (Version 1)
Quarter: 2018Q1

REPORT INFORMATION
  Report Type: Spontaneous
  Country: US (occurrence: US)
  Receive Date: 20180306
  Receipt Date: 20180306
  Transmission Date: 20180509
  Serious: Yes (Hospitalization)
  Sender: FDA-Public Use
  Company Number: None

PATIENT
  Age: 93 Year
  Sex: Female
  Weight: 58.3 kg

DRUGS (6)
  1. COREG [Concomitant]
     Active Substance: CARVEDILOL
  2. PROLIA [Concomitant]
     Active Substance: DENOSUMAB
  3. THERAGRAN [Concomitant]
     Active Substance: VITAMINS
  4. APAP [Concomitant]
     Active Substance: ACETAMINOPHEN
  5. IBUPROFEN. [Suspect]
     Active Substance: IBUPROFEN
     Indication: PAIN
     Dosage: 1500MG DAILY PO
     Route: 048
  6. VITAMIN D3 [Concomitant]
     Active Substance: CHOLECALCIFEROL

REACTIONS (3)
  - Acute kidney injury [None]
  - Dehydration [None]
  - Hyperkalaemia [None]

NARRATIVE: CASE EVENT DATE: 20171115
